FAERS Safety Report 7786614-X (Version None)
Quarter: 2011Q3

REPORT INFORMATION
  Report Type: 
  Country: None (occurrence: None)
  Receive Date: 20110929
  Receipt Date: 20110919
  Transmission Date: 20111222
  Serious: Yes (Hospitalization)
  Sender: FDA-Public Use
  Company Number: GB-ELI_LILLY_AND_COMPANY-GB201109005711

PATIENT
  Sex: Male

DRUGS (1)
  1. ZYPREXA [Suspect]
     Indication: DEPRESSION
     Dosage: 20 MG, QD
     Route: 065

REACTIONS (7)
  - MYDRIASIS [None]
  - ERECTILE DYSFUNCTION [None]
  - FUNCTIONAL GASTROINTESTINAL DISORDER [None]
  - HYPERVIGILANCE [None]
  - CONSTIPATION [None]
  - ILLUSION [None]
  - VISUAL IMPAIRMENT [None]
